FAERS Safety Report 6600641-7 (Version None)
Quarter: 2010Q1

REPORT INFORMATION
  Report Type: 
  Country: None (occurrence: None)
  Receive Date: 20100224
  Receipt Date: 20100118
  Transmission Date: 20100710
  Serious: Yes (Other)
  Sender: FDA-Public Use
  Company Number: US-JNJFOC-20100108901

PATIENT
  Age: 83 Year
  Sex: Female
  Weight: 47.63 kg

DRUGS (4)
  1. EXTRA STRENGTH TYLENOL [Suspect]
     Indication: PAIN
     Dosage: SOMETIMES 8 PILLS A DAY
     Route: 048
  2. EXTRA STRENGTH TYLENOL [Suspect]
     Indication: ARTHRITIS
     Dosage: SOMETIMES 8 PILLS A DAY
     Route: 048
  3. XANAX [Concomitant]
     Indication: ANXIETY
  4. PEPCID [Concomitant]
     Indication: FLATULENCE

REACTIONS (4)
  - DYSGEUSIA [None]
  - GASTRIC CANCER [None]
  - MALAISE [None]
  - PRODUCT QUALITY ISSUE [None]
